FAERS Safety Report 5122308-7 (Version None)
Quarter: 2006Q4

REPORT INFORMATION
  Report Type: 
  Country: None (occurrence: None)
  Receive Date: 20061003
  Receipt Date: 20060922
  Transmission Date: 20070319
  Serious: Yes (Hospitalization)
  Sender: FDA-Public Use
  Company Number: 2006PV021711

PATIENT
  Age: 49 Year
  Sex: Female
  Weight: 94.8018 kg

DRUGS (8)
  1. BYETTA [Suspect]
     Indication: DIABETES MELLITUS NON-INSULIN-DEPENDENT
     Dosage: 5 MCG; BID; SC
     Route: 058
     Dates: start: 20060701, end: 20060701
  2. PREDNISONE TAB [Concomitant]
  3. MS CONTIN [Concomitant]
  4. SERAX [Concomitant]
  5. ZANAFLEX [Concomitant]
  6. LANTUS [Concomitant]
  7. LOTREL [Concomitant]
  8. DOXYCYCLINE [Concomitant]

REACTIONS (3)
  - BLOOD PRESSURE FLUCTUATION [None]
  - PNEUMONIA [None]
  - SEPSIS [None]
